FAERS Safety Report 10551266 (Version 1)
Quarter: 2014Q4

REPORT INFORMATION
  Report Type: Spontaneous
  Country: US (occurrence: None)
  Receive Date: 20141028
  Receipt Date: 20141028
  Transmission Date: 20150529
  Serious: Yes (Other)
  Sender: FDA-Public Use
  Company Number: None

PATIENT
  Age: 67 Year
  Sex: Female
  Weight: 70.31 kg

DRUGS (2)
  1. TRIAMCINOLONE ACETONIDE CREAM 0.1% [Suspect]
     Active Substance: TRIAMCINOLONE ACETONIDE
     Indication: ERYTHEMA
     Dosage: TWO TIMES ADAY AS NEEDED TO SKIN.
     Dates: start: 20141016, end: 20141026
  2. STROMECTOL [Suspect]
     Active Substance: IVERMECTIN
     Indication: ACARODERMATITIS
     Dosage: 4 PILLS PER WEEK, TAKEN BY MOUTH
     Dates: start: 20141010, end: 20141017

REACTIONS (4)
  - Pruritus [None]
  - Pain in extremity [None]
  - Arthralgia [None]
  - Erythema [None]

NARRATIVE: CASE EVENT DATE: 20141010
